FAERS Safety Report 9440180 (Version 1)
Quarter: 2013Q3

REPORT INFORMATION
  Report Type: Spontaneous
  Country: JP (occurrence: JP)
  Receive Date: 20130805
  Receipt Date: 20130805
  Transmission Date: 20140515
  Serious: Yes (Other)
  Sender: FDA-Public Use
  Company Number: PHHY2013JP051657

PATIENT
  Sex: Female

DRUGS (1)
  1. ZOMETA [Suspect]
     Dosage: UNK UKN, UNK
     Route: 041

REACTIONS (4)
  - Osteonecrosis of jaw [Unknown]
  - Joint stiffness [Unknown]
  - Toothache [Unknown]
  - Tooth disorder [Unknown]
